FAERS Safety Report 10182650 (Version 1)
Quarter: 2014Q2

REPORT INFORMATION
  Report Type: Spontaneous
  Country: US (occurrence: None)
  Receive Date: 20140519
  Receipt Date: 20140519
  Transmission Date: 20141212
  Serious: No
  Sender: FDA-Public Use
  Company Number: None

PATIENT
  Age: 60 Year
  Sex: Female

DRUGS (8)
  1. IMBRUVICA 140 MG [Suspect]
     Indication: CHRONIC LYMPHOCYTIC LEUKAEMIA
     Route: 048
     Dates: start: 20140418
  2. ACYCLOVIR [Concomitant]
  3. SULFAMETHOXAZOLE [Concomitant]
  4. DICLOFECNAC POT [Concomitant]
  5. RESTASIS [Concomitant]
  6. VITAMIN B [Concomitant]
  7. FISH OIL [Concomitant]
  8. PROBIOTIC [Concomitant]

REACTIONS (1)
  - Diarrhoea [None]
